FAERS Safety Report 5078869-X (Version None)
Quarter: 2006Q3

REPORT INFORMATION
  Report Type: 
  Country: None (occurrence: None)
  Receive Date: 20060814
  Receipt Date: 20060605
  Transmission Date: 20061208
  Serious: Yes (Other)
  Sender: FDA-Public Use
  Company Number: PHEH2006US07288

PATIENT
  Age: 72 Year
  Sex: Female
  Weight: 93.877 kg

DRUGS (7)
  1. NORVASC [Concomitant]
     Dosage: 5 MG, QD
     Route: 048
  2. GLIPIZIDE [Concomitant]
     Dosage: 10 MG, QD
     Route: 048
  3. LEVOTHYROXINE SODIUM [Concomitant]
     Dosage: 0.1 MG, QD
     Route: 048
  4. ALLOPURINOL [Concomitant]
     Dosage: 300 MG, QD
     Route: 048
  5. LORTAB [Concomitant]
     Dosage: 10/500 Q4HR PRN
     Route: 048
  6. PILOCARPINE [Concomitant]
  7. EXJADE [Suspect]
     Indication: HAEMOSIDEROSIS
     Dosage: 2000 MG, QD
     Route: 048
     Dates: start: 20060516, end: 20060530

REACTIONS (3)
  - PETECHIAE [None]
  - PLATELET COUNT DECREASED [None]
  - RECTAL HAEMORRHAGE [None]
